APPROVED DRUG PRODUCT: NICORETTE
Active Ingredient: NICOTINE POLACRILEX
Strength: EQ 4MG BASE
Dosage Form/Route: GUM, CHEWING;BUCCAL
Application: N020066 | Product #002
Applicant: HALEON US HOLDINGS LLC
Approved: Feb 9, 1996 | RLD: Yes | RS: Yes | Type: OTC

PATENTS:
Patent 8323683 | Expires: Apr 30, 2028